FAERS Safety Report 16024427 (Version 1)
Quarter: 2019Q1

REPORT INFORMATION
  Report Type: Spontaneous
  Country: US (occurrence: US)
  Receive Date: 20190301
  Receipt Date: 20190301
  Transmission Date: 20190418
  Serious: Yes (Other)
  Sender: FDA-Public Use
  Company Number: US-009507513-1902USA008531

PATIENT
  Age: 21 Year
  Sex: Female
  Weight: 112.9 kg

DRUGS (1)
  1. NEXPLANON [Suspect]
     Active Substance: ETONOGESTREL
     Dosage: 1 IMPLANT, LEFT ARM
     Dates: start: 20150922

REACTIONS (4)
  - Complication associated with device [Unknown]
  - Device dislocation [Unknown]
  - Hypoaesthesia [Unknown]
  - Incorrect product administration duration [Unknown]
